FAERS Safety Report 6499140-5 (Version None)
Quarter: 2009Q4

REPORT INFORMATION
  Report Type: 
  Country: None (occurrence: None)
  Receive Date: 20091127
  Receipt Date: 20081209
  Transmission Date: 20100525
  Serious: Yes (Other)
  Sender: FDA-Public Use
  Company Number: WAES 0807USA02772

PATIENT
  Age: 58 Year
  Sex: Female

DRUGS (2)
  1. FOSAMAX [Suspect]
     Indication: OSTEOPOROSIS PROPHYLAXIS
     Dosage: 70 MG/WKY/PO
     Route: 048
     Dates: start: 20020201, end: 20060406
  2. FOSAMAX PLUS D [Suspect]
     Indication: OSTEOPOROSIS PROPHYLAXIS
     Dosage: 70 MG/WKY/PO
     Route: 048
     Dates: start: 20021212, end: 20060406

REACTIONS (12)
  - BACK PAIN [None]
  - BLOOD CHOLESTEROL INCREASED [None]
  - CERVICAL CYST [None]
  - HYPERTENSION [None]
  - LOOSE TOOTH [None]
  - NECK PAIN [None]
  - NEPHROLITHIASIS [None]
  - OSTEONECROSIS [None]
  - THYROID DISORDER [None]
  - TOOTH DISORDER [None]
  - TOOTH INFECTION [None]
  - UTERINE LEIOMYOMA [None]
